FAERS Safety Report 4868295-8 (Version None)
Quarter: 2005Q4

REPORT INFORMATION
  Report Type: 
  Country: None (occurrence: None)
  Receive Date: 20051223
  Receipt Date: 20051219
  Transmission Date: 20060501
  Serious: Yes (Life-Threatening, Hospitalization)
  Sender: FDA-Public Use
  Company Number: 24049

PATIENT
  Age: 74 Year
  Sex: Female
  Weight: 80.2867 kg

DRUGS (3)
  1. NIASPAN [Suspect]
     Indication: LIPIDS INCREASED
     Dosage: 500 MG QD PO
     Route: 048
     Dates: start: 20051126
  2. PLAVIX [Concomitant]
  3. LIPITOR [Concomitant]

REACTIONS (3)
  - HAEMARTHROSIS [None]
  - POST PROCEDURAL HAEMORRHAGE [None]
  - SHOULDER ARTHROPLASTY [None]
